FAERS Safety Report 25711782 (Version 2)
Quarter: 2025Q3

REPORT INFORMATION
  Report Type: Spontaneous
  Country: US (occurrence: US)
  Receive Date: 20250821
  Receipt Date: 20250904
  Transmission Date: 20251020
  Serious: Yes (Other)
  Sender: TEVA
  Company Number: US-TEVA-VS-3362631

PATIENT
  Age: 54 Year
  Sex: Male

DRUGS (3)
  1. CYCLOSPORINE [Suspect]
     Active Substance: CYCLOSPORINE
     Indication: Immunosuppressant drug therapy
     Route: 065
  2. TACROLIMUS [Suspect]
     Active Substance: TACROLIMUS
     Indication: Immunosuppressant drug therapy
     Dosage: FOLLOWED BY UP-TITRATION OF THE DOSE
     Route: 065
  3. PREDNISONE [Suspect]
     Active Substance: PREDNISONE
     Indication: Immunosuppressant drug therapy
     Route: 065

REACTIONS (6)
  - Necrotising oesophagitis [Recovered/Resolved]
  - Drug ineffective [Unknown]
  - Nephropathy toxic [Unknown]
  - Acute kidney injury [Unknown]
  - Mental status changes [Unknown]
  - Neurotoxicity [Unknown]
